FAERS Safety Report 7322530-5 (Version None)
Quarter: 2011Q1

REPORT INFORMATION
  Report Type: 
  Country: None (occurrence: None)
  Receive Date: 20110301
  Receipt Date: 20110223
  Transmission Date: 20110831
  Serious: Yes (Hospitalization)
  Sender: FDA-Public Use
  Company Number: US-ASTRAZENECA-2007UW02043

PATIENT
  Age: 646 Month
  Sex: Female
  Weight: 117.9 kg

DRUGS (33)
  1. PAXIL [Concomitant]
     Route: 048
  2. ZANTAC [Concomitant]
  3. LASIX [Concomitant]
     Route: 048
  4. ACTOS [Concomitant]
     Route: 048
     Dates: end: 20030421
  5. METHOCARBAMOL [Concomitant]
  6. EFFEROX XR [Concomitant]
     Route: 048
     Dates: start: 20060705
  7. ATIVAN [Concomitant]
     Indication: DEPRESSION
  8. SEROQUEL [Suspect]
     Dosage: 100 MG TO 300 MG
     Route: 048
     Dates: start: 20010301
  9. SEROQUEL [Suspect]
     Dosage: 100 MG TO 300 MG
     Route: 048
     Dates: start: 20010301
  10. PAXIL [Concomitant]
     Route: 048
  11. BENADRYL [Concomitant]
     Route: 048
  12. BUSPAR [Concomitant]
     Route: 048
  13. ZOLOFT [Concomitant]
     Indication: DEPRESSION
     Route: 048
  14. DIOVAN [Concomitant]
     Route: 048
  15. DIOVAN [Concomitant]
     Route: 048
  16. ZANAFLEX [Concomitant]
     Route: 048
  17. HYDROCODONE BITARTRATE [Concomitant]
     Dosage: 7.5 MG - 50 MG
     Route: 048
  18. EFFEROX XR [Concomitant]
     Route: 048
     Dates: end: 20060617
  19. SINGULAIR [Concomitant]
     Route: 048
  20. ZANAFLEX [Concomitant]
     Route: 048
  21. LORCET-HD [Concomitant]
     Route: 048
  22. LORCET-HD [Concomitant]
     Dosage: 10 MG - 650 MG
     Route: 048
  23. ALBUTEROL [Concomitant]
     Route: 045
  24. REMERON [Concomitant]
  25. ACTOS [Concomitant]
     Route: 048
     Dates: start: 20030524
  26. SEROQUEL [Suspect]
     Indication: DEPRESSION
     Dosage: 100-300 MG
     Route: 048
     Dates: start: 20001220
  27. TOPAMAX [Concomitant]
  28. PREMARIN [Concomitant]
     Route: 048
  29. BAYCOL [Concomitant]
     Route: 048
  30. XANAX [Concomitant]
     Route: 048
  31. SEROQUEL [Suspect]
     Indication: POST-TRAUMATIC STRESS DISORDER
     Dosage: 100-300 MG
     Route: 048
     Dates: start: 20001220
  32. DEPAKOTE [Concomitant]
     Indication: HEADACHE
     Dates: start: 19991101, end: 20030901
  33. ZESTRIL [Concomitant]
     Route: 048

REACTIONS (23)
  - PAIN [None]
  - SINUS DISORDER [None]
  - INTERVERTEBRAL DISC CALCIFICATION [None]
  - ARTHROPATHY [None]
  - CHEST PAIN [None]
  - ABDOMINAL PAIN UPPER [None]
  - MUSCLE STRAIN [None]
  - TYPE 2 DIABETES MELLITUS [None]
  - INSOMNIA [None]
  - NECK PAIN [None]
  - CERVICOBRACHIAL SYNDROME [None]
  - MUSCULOSKELETAL PAIN [None]
  - WEIGHT INCREASED [None]
  - SLEEP APNOEA SYNDROME [None]
  - ANGINA UNSTABLE [None]
  - DYSPNOEA [None]
  - INTERVERTEBRAL DISC PROTRUSION [None]
  - RENAL COLIC [None]
  - BACK PAIN [None]
  - SPINAL OSTEOARTHRITIS [None]
  - NERVE ROOT INJURY LUMBAR [None]
  - LUMBAR RADICULOPATHY [None]
  - INTERVERTEBRAL DISC DEGENERATION [None]
